FAERS Safety Report 21076993 (Version 1)
Quarter: 2022Q3

REPORT INFORMATION
  Report Type: Report from Study
  Country: US (occurrence: US)
  Receive Date: 20220713
  Receipt Date: 20220713
  Transmission Date: 20221027
  Serious: No
  Sender: FDA-Public Use
  Company Number: US-VANDA PHARMACEUTICALS, INC-2022TASUS005799

PATIENT
  Age: 41 Year
  Sex: Female
  Weight: 100.23 kg

DRUGS (1)
  1. HETLIOZ [Suspect]
     Active Substance: TASIMELTEON
     Indication: Non-24-hour sleep-wake disorder
     Dosage: 20 MILLIGRAM, QD EVERY DAY AT BEDTIME
     Route: 048
     Dates: start: 20190213

REACTIONS (8)
  - Migraine [Unknown]
  - Insomnia [Unknown]
  - Initial insomnia [Unknown]
  - Panic attack [Unknown]
  - Feeling abnormal [Unknown]
  - Sinus headache [Unknown]
  - Product dose omission issue [Unknown]
  - Drug ineffective [Unknown]

NARRATIVE: CASE EVENT DATE: 20220301
